FAERS Safety Report 9343750 (Version 2)
Quarter: 2013Q3

REPORT INFORMATION
  Report Type: Spontaneous
  Country: FR (occurrence: FR)
  Receive Date: 20130612
  Receipt Date: 20130701
  Transmission Date: 20140515
  Serious: Yes (Other)
  Sender: FDA-Public Use
  Company Number: FR-JNJFOC-20130603410

PATIENT
  Age: 37 Year
  Sex: Female
  Weight: 47 kg

DRUGS (3)
  1. REMICADE [Suspect]
     Indication: COLITIS ULCERATIVE
     Route: 042
     Dates: start: 20081107, end: 20130503
  2. FORLAX [Concomitant]
     Indication: CONSTIPATION
     Dosage: 2 BAGS DOSE DAILY
     Route: 065
     Dates: start: 2009
  3. FIVASA [Concomitant]
     Indication: COLITIS ULCERATIVE
     Route: 065
     Dates: start: 2010

REACTIONS (1)
  - Systemic lupus erythematosus [Not Recovered/Not Resolved]
